FAERS Safety Report 6888664-4 (Version None)
Quarter: 2010Q3

REPORT INFORMATION
  Report Type: 
  Country: None (occurrence: None)
  Receive Date: 20100730
  Receipt Date: 20100723
  Transmission Date: 20110219
  Serious: Yes (Other)
  Sender: FDA-Public Use
  Company Number: CA-AMGEN-QUU426757

PATIENT
  Sex: Female

DRUGS (10)
  1. ENBREL [Suspect]
     Indication: RHEUMATOID ARTHRITIS
     Route: 058
  2. SULFASALAZINE [Concomitant]
  3. ZOCOR [Concomitant]
  4. ELTROXIN [Concomitant]
  5. CONJUGATED ESTROGENS [Concomitant]
  6. METOPROLOL TARTRATE [Concomitant]
  7. ALENDRONATE SODIUM [Concomitant]
  8. PRILOSEC [Concomitant]
  9. CETIRIZINE HCL [Concomitant]
  10. TYLENOL W/ CODEINE NO. 2 [Concomitant]

REACTIONS (2)
  - RHEUMATOID ARTHRITIS [None]
  - THERAPEUTIC RESPONSE DECREASED [None]
